FAERS Safety Report 10036031 (Version 2)
Quarter: 2014Q2

REPORT INFORMATION
  Report Type: Spontaneous
  Country: GB (occurrence: GB)
  Receive Date: 20140325
  Receipt Date: 20140409
  Transmission Date: 20141212
  Serious: Yes (Other)
  Sender: FDA-Public Use
  Company Number: GB-ACTAVISPR-2014-05296

PATIENT
  Age: 81 Year
  Sex: Male

DRUGS (3)
  1. QUETIAPINE FUMARATE [Suspect]
     Indication: ANXIETY
     Dosage: 12.5 MG, DAILY
     Route: 048
     Dates: start: 201403
  2. QUETIAPINE FUMARATE [Suspect]
     Indication: CONFUSIONAL STATE
  3. QUETIAPINE FUMARATE [Suspect]
     Indication: AGITATION

REACTIONS (2)
  - Depression [Not Recovered/Not Resolved]
  - Suicidal ideation [Not Recovered/Not Resolved]
